FAERS Safety Report 9173678 (Version 1)
Quarter: 2013Q1

REPORT INFORMATION
  Report Type: Spontaneous
  Country: US (occurrence: None)
  Receive Date: 20130314
  Receipt Date: 20130314
  Transmission Date: 20140127
  Serious: Yes (Other)
  Sender: FDA-Public Use
  Company Number: 2013P1002947

PATIENT
  Age: 50 Year
  Sex: Female

DRUGS (2)
  1. INFUMORPH [Suspect]
  2. BUPIVACAINE [Suspect]

REACTIONS (2)
  - Seroma [None]
  - Infection [None]
